FAERS Safety Report 6964052-7 (Version None)
Quarter: 2010Q3

REPORT INFORMATION
  Report Type: 
  Country: None (occurrence: None)
  Receive Date: 20100902
  Receipt Date: 20100902
  Transmission Date: 20110219
  Serious: Yes (Hospitalization)
  Sender: FDA-Public Use
  Company Number: None

PATIENT
  Sex: Female
  Weight: 58.5 kg

DRUGS (6)
  1. ERBITUX [Suspect]
     Dosage: 2400 MG
     Dates: end: 20100804
  2. TAXOL [Suspect]
     Dosage: 320 MG
     Dates: end: 20100721
  3. CARBOPLATIN [Suspect]
     Dosage: 1000 MG
     Dates: end: 20100721
  4. AZITHROMYCIN [Concomitant]
  5. CEFIRIOXINE [Concomitant]
  6. DEXAMETHASONE [Concomitant]

REACTIONS (9)
  - BRAIN OEDEMA [None]
  - CENTRAL NERVOUS SYSTEM LESION [None]
  - DISEASE PROGRESSION [None]
  - DIZZINESS [None]
  - GENERAL PHYSICAL HEALTH DETERIORATION [None]
  - HEADACHE [None]
  - INFLUENZA LIKE ILLNESS [None]
  - MOBILITY DECREASED [None]
  - PNEUMONIA [None]
